FAERS Safety Report 6143677-5 (Version None)
Quarter: 2009Q2

REPORT INFORMATION
  Report Type: 
  Country: None (occurrence: None)
  Receive Date: 20090403
  Receipt Date: 20090402
  Transmission Date: 20091009
  Serious: Yes (Death)
  Sender: FDA-Public Use
  Company Number: US-ASTRAZENECA-2009UW08383

PATIENT
  Age: 52 Year
  Sex: Male
  Weight: 137.4 kg

DRUGS (14)
  1. ATENOLOL [Suspect]
     Indication: HYPERTENSION
     Route: 048
  2. LISINOPRIL AND HYDROCHLOROTHIAZIDE [Suspect]
     Indication: HYPERTENSION
     Dosage: 20 MG / 12.5 MG - 1 TABLET DAILY
     Route: 048
  3. SEROQUEL [Suspect]
     Route: 048
  4. OPANA [Suspect]
     Route: 048
  5. FLUOXETINE [Suspect]
     Indication: DEPRESSION
  6. LUNESTA [Suspect]
     Indication: SLEEP DISORDER
     Route: 048
  7. METHOTREXATE [Suspect]
     Dosage: 2.5 MG, 3 TABS WEEKLY
  8. CARISOPRODOL [Suspect]
     Dosage: 350 MG, 1 TAB TID
     Route: 048
  9. FORADIL INHALER [Suspect]
     Dosage: 1 DOSE BID
     Route: 055
  10. PEG-INTRON [Suspect]
  11. REQUIP [Suspect]
  12. AMITRIPTYLINE HCL [Suspect]
  13. HYDROXYZINE [Suspect]
  14. NABUMETONE [Suspect]

REACTIONS (1)
  - DEATH [None]
